FAERS Safety Report 5217651-7 (Version None)
Quarter: 2007Q1

REPORT INFORMATION
  Report Type: 
  Country: None (occurrence: None)
  Receive Date: 20061130
  Receipt Date: 20060602
  Transmission Date: 20070707
  Serious: Yes (Hospitalization)
  Sender: FDA-Public Use
  Company Number: US200602004318

PATIENT
  Age: 36 Year
  Sex: Male
  Weight: 94.3 kg

DRUGS (9)
  1. ZYPREXA [Suspect]
     Indication: SCHIZOAFFECTIVE DISORDER
     Dates: start: 20010416, end: 20040301
  2. EFFEXOR [Concomitant]
  3. PAMELOR /USA/(NORTRIPTYLINE HYDROCHLORIDE) [Concomitant]
  4. TRAZODONE HCL [Concomitant]
  5. KLONOPIN [Concomitant]
  6. SEROQUEL [Concomitant]
  7. GEODON [Concomitant]
  8. ZOLOFT [Concomitant]
  9. ATIVAN [Concomitant]

REACTIONS (9)
  - ANXIETY [None]
  - BLOOD CHOLESTEROL ABNORMAL [None]
  - BLOOD TRIGLYCERIDES INCREASED [None]
  - DEPRESSION [None]
  - DIABETES MELLITUS NON-INSULIN-DEPENDENT [None]
  - HEPATITIS VIRAL [None]
  - HYPERGLYCAEMIA [None]
  - OBESITY [None]
  - VISION BLURRED [None]
